FAERS Safety Report 14239350 (Version 1)
Quarter: 2017Q4

REPORT INFORMATION
  Report Type: Report from Study
  Country: TW (occurrence: TW)
  Receive Date: 20171130
  Receipt Date: 20171130
  Transmission Date: 20180321
  Serious: Yes (Death, Hospitalization, Other)
  Sender: FDA-Public Use
  Company Number: TW-PFIZER INC-2016449883

PATIENT
  Age: 57 Year
  Sex: Female
  Weight: 42 kg

DRUGS (4)
  1. PALBOCICLIB [Suspect]
     Active Substance: PALBOCICLIB
     Indication: BREAST CANCER METASTATIC
     Dosage: 62.5 MG, UNK
     Dates: start: 20160708
  2. PALBOCICLIB [Suspect]
     Active Substance: PALBOCICLIB
     Dosage: 125 MG, QD, 3 WEEKS ON, 1 WEEK OFF
     Route: 048
     Dates: start: 20160708
  3. FASLODEX [Concomitant]
     Active Substance: FULVESTRANT
     Indication: BREAST CANCER METASTATIC
     Dosage: 500 MG, EVERY 2 WEEKS IN FIRST 1 MONTH FOLLOWED BY 500MG/ MONTH (EVERY 4 WEEKS)
     Route: 042
     Dates: start: 20160915, end: 20161101
  4. FEMARA [Concomitant]
     Active Substance: LETROZOLE
     Indication: BREAST CANCER METASTATIC
     Dosage: 2.5 MG, QD
     Route: 048
     Dates: start: 20160708, end: 20160914

REACTIONS (4)
  - Death [Fatal]
  - Anaemia [Recovering/Resolving]
  - White blood cell count decreased [Recovering/Resolving]
  - Thrombocytopenia [Recovering/Resolving]

NARRATIVE: CASE EVENT DATE: 20160708
